FAERS Safety Report 24133317 (Version 4)
Quarter: 2024Q4

REPORT INFORMATION
  Report Type: Spontaneous
  Country: US (occurrence: US)
  Receive Date: 20240724
  Receipt Date: 20241121
  Transmission Date: 20250115
  Serious: Yes (Other)
  Sender: SANOFI AVENTIS
  Company Number: US-SA-SAC20240723000480

PATIENT
  Age: 76 Year
  Sex: Female

DRUGS (1)
  1. DUPIXENT [Suspect]
     Active Substance: DUPILUMAB
     Indication: Dermatitis atopic
     Dosage: 300 MG, QOW
     Route: 058
     Dates: start: 20230612, end: 202410

REACTIONS (17)
  - Diabetes mellitus [Unknown]
  - Sneezing [Unknown]
  - Dry skin [Unknown]
  - Rash macular [Unknown]
  - Rhinorrhoea [Unknown]
  - Headache [Unknown]
  - Asthenia [Unknown]
  - Gastrointestinal disorder [Unknown]
  - Vomiting [Unknown]
  - Dyspnoea exertional [Unknown]
  - Cough [Unknown]
  - Limb discomfort [Unknown]
  - Fatigue [Unknown]
  - Rebound eczema [Unknown]
  - Pruritus [Unknown]
  - Arthralgia [Unknown]
  - Drug ineffective [Unknown]
